FAERS Safety Report 9879551 (Version 1)
Quarter: 2014Q1

REPORT INFORMATION
  Report Type: Spontaneous
  Country: IT (occurrence: IT)
  Receive Date: 20140206
  Receipt Date: 20140206
  Transmission Date: 20141002
  Serious: Yes (Other)
  Sender: FDA-Public Use
  Company Number: IT-GILEAD-2014-0093201

PATIENT
  Age: 72 Year
  Sex: Male

DRUGS (13)
  1. RANOLAZINE [Suspect]
     Indication: ANGINA PECTORIS
     Dosage: 1000 MG, QD
     Route: 048
     Dates: start: 201107, end: 2012
  2. ATORVASTATIN [Suspect]
     Indication: MYOCARDIAL ISCHAEMIA
     Dosage: 40 MG, QD
     Route: 065
     Dates: end: 201109
  3. ATORVASTATIN [Suspect]
     Indication: HYPERCHOLESTEROLAEMIA
  4. ATORVASTATIN [Suspect]
     Indication: HYPERTRIGLYCERIDAEMIA
  5. SERTRALINE [Suspect]
     Indication: ABNORMAL BEHAVIOUR
     Dosage: 25 MG, QD
     Route: 065
  6. QUETIAPINE [Suspect]
     Indication: ABNORMAL BEHAVIOUR
     Dosage: 50 MG, QD
     Route: 065
  7. FUROSEMIDE [Suspect]
     Indication: DIURETIC THERAPY
     Dosage: 25 MG, Q1WK (WEEKLY)
     Route: 065
  8. VALSARTAN [Concomitant]
     Dosage: 20 MG, QD
  9. ALLOPURINOL [Concomitant]
     Dosage: 150 MG, QD
  10. BISOPROLOL [Concomitant]
     Dosage: 2.5 MG, QD
  11. ACETYLSALICYLIC ACID [Concomitant]
     Dosage: 100 MG, QD
  12. OMEPRAZOLE [Concomitant]
     Dosage: 20 MG, QD
  13. NITROGLYCERIN [Concomitant]
     Dosage: 10 MG, QD
     Route: 062

REACTIONS (11)
  - Rhabdomyolysis [Unknown]
  - Drug interaction [Unknown]
  - Blood creatine phosphokinase increased [Recovered/Resolved]
  - Myoglobin blood increased [Recovered/Resolved]
  - Muscle injury [Unknown]
  - Muscular weakness [Unknown]
  - Myalgia [Unknown]
  - Malaise [Unknown]
  - Fall [Unknown]
  - Nausea [Unknown]
  - Vomiting [Unknown]
